FAERS Safety Report 5625461-1 (Version None)
Quarter: 2008Q1

REPORT INFORMATION
  Report Type: 
  Country: None (occurrence: None)
  Receive Date: 20080208
  Receipt Date: 20080131
  Transmission Date: 20080703
  Serious: Yes (Other)
  Sender: FDA-Public Use
  Company Number: CHPA2008US01916

PATIENT
  Sex: Female

DRUGS (1)
  1. NICOTINE [Suspect]
     Dosage: TRANSDERMAL

REACTIONS (3)
  - FEELING JITTERY [None]
  - LOSS OF CONSCIOUSNESS [None]
  - NERVOUSNESS [None]
